FAERS Safety Report 6892426-1 (Version None)
Quarter: 2010Q3

REPORT INFORMATION
  Report Type: 
  Country: None (occurrence: None)
  Receive Date: 20100731
  Receipt Date: 20080501
  Transmission Date: 20110219
  Serious: No
  Sender: FDA-Public Use
  Company Number: US-PFIZER INC-2008038988

PATIENT
  Sex: Male

DRUGS (3)
  1. NEURONTIN [Suspect]
  2. NAPROXEN [Interacting]
  3. VICODIN [Interacting]

REACTIONS (3)
  - DRUG INTERACTION [None]
  - FEELING ABNORMAL [None]
  - FIBROMYALGIA [None]
